FAERS Safety Report 16236142 (Version 2)
Quarter: 2025Q4

REPORT INFORMATION
  Report Type: Spontaneous
  Country: EU (occurrence: EU)
  Receive Date: 20190425
  Receipt Date: 20251230
  Transmission Date: 20260118
  Serious: Yes (Life-Threatening, Other)
  Sender: AUROBINDO
  Company Number: EU-AUROBINDO-AUR-APL-2019-021914

PATIENT
  Age: 78 Year
  Sex: Female
  Weight: 62 kg

DRUGS (7)
  1. PRAVASTATIN SODIUM [Suspect]
     Active Substance: PRAVASTATIN SODIUM
     Indication: Dyslipidaemia
     Dosage: 20 MILLIGRAM, ONCE A DAY
     Route: 061
     Dates: end: 20190313
  2. ZOPICLONE [Suspect]
     Active Substance: ZOPICLONE
     Indication: Insomnia
     Dosage: 7.5 MILLIGRAM, ONCE A DAY
     Route: 061
     Dates: end: 20190221
  3. METFORMIN HYDROCHLORIDE [Suspect]
     Active Substance: METFORMIN HYDROCHLORIDE
     Indication: Type 2 diabetes mellitus
     Dosage: 3000 MILLIGRAM, ONCE A DAY
     Route: 061
     Dates: end: 20190221
  4. EXELON PATCH [Suspect]
     Active Substance: RIVASTIGMINE
     Indication: Dementia Alzheimer^s type
     Dosage: 1 DOSAGE FORM, ONCE A DAY
     Dates: end: 20190311
  5. KARDEGIC [Suspect]
     Active Substance: ASPIRIN DL-LYSINE
     Indication: Vascular dementia
     Dosage: 1 DOSAGE FORM, ONCE A DAY
     Route: 061
     Dates: end: 20190221
  6. INDAPAMIDE [Suspect]
     Active Substance: INDAPAMIDE
     Indication: Hypertension
     Dosage: 1 DOSAGE FORM, ONCE A DAY
     Route: 061
     Dates: end: 20190223
  7. LEVOTHYROXINE [Concomitant]
     Active Substance: LEVOTHYROXINE
     Indication: Product used for unknown indication
     Dosage: UNK
     Route: 065

REACTIONS (3)
  - Hypokalaemia [Recovered/Resolved]
  - Torsade de pointes [Recovered/Resolved]
  - Electrocardiogram QT prolonged [Not Recovered/Not Resolved]

NARRATIVE: CASE EVENT DATE: 20190221
